FAERS Safety Report 13113353 (Version 1)
Quarter: 2017Q1

REPORT INFORMATION
  Report Type: Spontaneous
  Country: US (occurrence: US)
  Receive Date: 20170113
  Receipt Date: 20170113
  Transmission Date: 20170428
  Serious: Yes (Death)
  Sender: FDA-Public Use
  Company Number: None

PATIENT
  Age: 78 Year
  Sex: Female
  Weight: 69.8 kg

DRUGS (23)
  1. VALSARTAN. [Concomitant]
     Active Substance: VALSARTAN
  2. MAGNESIUM OXIDE. [Concomitant]
     Active Substance: MAGNESIUM OXIDE
  3. RANITIDINE. [Concomitant]
     Active Substance: RANITIDINE
  4. SCOPOLAMINE [Concomitant]
     Active Substance: SCOPOLAMINE
  5. METOPROLOL TARTRATE. [Concomitant]
     Active Substance: METOPROLOL TARTRATE
  6. LEVOTHYROXINE. [Concomitant]
     Active Substance: LEVOTHYROXINE
  7. PROTAMINE [Concomitant]
     Active Substance: PROTAMINE
  8. DEXAMETHASONE. [Concomitant]
     Active Substance: DEXAMETHASONE
  9. MICAFUNGIN [Concomitant]
     Active Substance: MICAFUNGIN
  10. LEVETIRACETAM. [Concomitant]
     Active Substance: LEVETIRACETAM
  11. SODIUM PHOSPHATE [Concomitant]
     Active Substance: SODIUM PHOSPHATE
  12. VORICONAZOLE. [Concomitant]
     Active Substance: VORICONAZOLE
  13. KETOROLAC [Concomitant]
     Active Substance: KETOROLAC\KETOROLAC TROMETHAMINE
  14. LORAZEPAM. [Concomitant]
     Active Substance: LORAZEPAM
  15. MAGNESIUM SULFATE. [Concomitant]
     Active Substance: MAGNESIUM SULFATE
  16. POTASSIUM CHLORIDE. [Concomitant]
     Active Substance: POTASSIUM CHLORIDE
  17. DOCUSATE SODIUM. [Concomitant]
     Active Substance: DOCUSATE SODIUM
  18. HYDROCODONE-ACETAMINOPHEN [Concomitant]
     Active Substance: ACETAMINOPHEN\HYDROCODONE
  19. ONDANSETRON [Concomitant]
     Active Substance: ONDANSETRON
  20. HEPARIN INFUSION 100 UNITS/ML, 250ML [Suspect]
     Active Substance: HEPARIN SODIUM
     Indication: THROMBOSIS PROPHYLAXIS
     Dosage: 12 UNITS/KG/HR CONTINUOUS INTRAVENOUS
     Route: 042
     Dates: start: 20160710, end: 20160711
  21. ACETAMINOPEHN [Concomitant]
     Active Substance: ACETAMINOPHEN
  22. DULOXETINE. [Concomitant]
     Active Substance: DULOXETINE
  23. BUMETANIDE. [Concomitant]
     Active Substance: BUMETANIDE

REACTIONS (1)
  - Haemorrhage intracranial [None]

NARRATIVE: CASE EVENT DATE: 20160711
